FAERS Safety Report 10079470 (Version 2)
Quarter: 2014Q4

REPORT INFORMATION
  Report Type: Spontaneous
  Country: IT (occurrence: IT)
  Receive Date: 20140415
  Receipt Date: 20141120
  Transmission Date: 20150528
  Serious: Yes (Hospitalization)
  Sender: FDA-Public Use
  Company Number: IT-ABBVIE-14P-083-1226269-00

PATIENT
  Age: 4 Year
  Sex: Male

DRUGS (1)
  1. MACLADIN [Suspect]
     Active Substance: CLARITHROMYCIN
     Indication: PYREXIA
     Dosage: FORM STRENGTH: 250 MG/5 ML
     Route: 048
     Dates: start: 20140327, end: 20140327

REACTIONS (3)
  - Rash maculo-papular [Unknown]
  - Eyelid oedema [Recovered/Resolved]
  - Bronchospasm [Recovered/Resolved]

NARRATIVE: CASE EVENT DATE: 20140327
